FAERS Safety Report 5321246-4 (Version None)
Quarter: 2007Q1

REPORT INFORMATION
  Report Type: 
  Country: None (occurrence: None)
  Receive Date: 20070215
  Receipt Date: 20061120
  Transmission Date: 20070707
  Serious: No
  Sender: FDA-Public Use
  Company Number: 200615242BWH

PATIENT
  Sex: Female

DRUGS (3)
  1. NEXAVAR [Suspect]
     Indication: METASTATIC RENAL CELL CARCINOMA
     Dosage: 400 MG, BID, ORAL
     Route: 048
     Dates: start: 20060801
  2. TYLENOL [Concomitant]
  3. ZOMETA [Concomitant]

REACTIONS (5)
  - ALOPECIA [None]
  - DIARRHOEA [None]
  - KERATOCONJUNCTIVITIS SICCA [None]
  - NAUSEA [None]
  - RASH PRURITIC [None]
